FAERS Safety Report 11519656 (Version 2)
Quarter: 2015Q4

REPORT INFORMATION
  Report Type: Report from Study
  Country: US (occurrence: US)
  Receive Date: 20150918
  Receipt Date: 20151002
  Transmission Date: 20160304
  Serious: Yes (Other)
  Sender: FDA-Public Use
  Company Number: US-BEH-2015053928

PATIENT
  Sex: Female

DRUGS (1)
  1. HUMATE [Suspect]
     Active Substance: HUMAN COAGULATION FACTOR VIII/VON WILLEBRAND FACTOR COMPLEX
     Indication: PRODUCT USED FOR UNKNOWN INDICATION

REACTIONS (1)
  - Postpartum haemorrhage [Unknown]
